FAERS Safety Report 4840880-9 (Version None)
Quarter: 2005Q4

REPORT INFORMATION
  Report Type: 
  Country: None (occurrence: None)
  Receive Date: 20051027
  Receipt Date: 20050315
  Transmission Date: 20060501
  Serious: Yes (Other)
  Sender: FDA-Public Use
  Company Number: HQWYE178818MAR05

PATIENT
  Age: 66 Year
  Sex: Female
  Weight: 78.09 kg

DRUGS (1)
  1. PREMARIN [Suspect]
     Indication: HOT FLUSH
     Dosage: ORAL
     Route: 048
     Dates: start: 19830101, end: 20000101

REACTIONS (1)
  - BREAST CANCER [None]
